FAERS Safety Report 25440093 (Version 1)
Quarter: 2025Q2

REPORT INFORMATION
  Report Type: Spontaneous
  Country: US (occurrence: US)
  Receive Date: 20250616
  Receipt Date: 20250616
  Transmission Date: 20250717
  Serious: Yes (Other)
  Sender: PFIZER
  Company Number: US-PFIZER INC-PV202500070745

PATIENT
  Age: 80 Year
  Sex: Female

DRUGS (2)
  1. INLYTA [Suspect]
     Active Substance: AXITINIB
  2. INLYTA [Suspect]
     Active Substance: AXITINIB

REACTIONS (4)
  - Malignant neoplasm progression [Unknown]
  - Nephrectomy [Unknown]
  - Diarrhoea [Unknown]
  - Hypertension [Unknown]
